FAERS Safety Report 7808169-3 (Version None)
Quarter: 2011Q4

REPORT INFORMATION
  Report Type: 
  Country: None (occurrence: None)
  Receive Date: 20111011
  Receipt Date: 20111005
  Transmission Date: 20120403
  Serious: Yes (Hospitalization)
  Sender: FDA-Public Use
  Company Number: FR-MERCK-1109USA03336

PATIENT
  Age: 25 Year
  Sex: Male

DRUGS (17)
  1. PENTACARINAT [Concomitant]
     Route: 055
     Dates: start: 20110708, end: 20110708
  2. PRIMAXIN [Concomitant]
     Route: 042
     Dates: start: 20110713
  3. PIPERACILLIN AND TAZOBACTAM [Suspect]
     Route: 042
     Dates: start: 20110711, end: 20110712
  4. EMEND [Suspect]
     Route: 048
     Dates: start: 20110708, end: 20110708
  5. AMIKACIN [Suspect]
     Route: 042
     Dates: start: 20110711, end: 20110712
  6. BACTRIM [Concomitant]
     Dosage: 2 CAPSULES ON MONDAY, ON WEDNESDAY AND ON FRIDAY.
     Route: 065
  7. HYDREA [Concomitant]
     Route: 065
  8. EMEND [Suspect]
     Route: 048
     Dates: start: 20110709, end: 20110713
  9. TRAMADOL HCL [Suspect]
     Route: 048
     Dates: start: 20110709, end: 20110712
  10. TARGOCID [Concomitant]
     Route: 042
     Dates: start: 20110713
  11. VFEND [Suspect]
     Indication: ANTIFUNGAL PROPHYLAXIS
     Route: 048
  12. CIPROFLOXACIN [Suspect]
     Route: 042
     Dates: start: 20110713, end: 20110715
  13. ZOFRAN [Suspect]
     Route: 048
     Dates: start: 20110708, end: 20110713
  14. CYTARABINE [Suspect]
     Indication: ACUTE MYELOID LEUKAEMIA
     Route: 042
     Dates: start: 20110708, end: 20110712
  15. EVOLTRA [Suspect]
     Route: 042
     Dates: start: 20110708, end: 20110712
  16. FASTURTEC [Concomitant]
     Route: 065
  17. VALACYCLOVIR HYDROCHLORIDE [Suspect]
     Indication: ANTIVIRAL PROPHYLAXIS
     Route: 048

REACTIONS (1)
  - PHOTOSENSITIVITY REACTION [None]
